FAERS Safety Report 21310405 (Version 1)
Quarter: 2022Q3

REPORT INFORMATION
  Report Type: Report from Study
  Country: CN (occurrence: CN)
  Receive Date: 20220909
  Receipt Date: 20220909
  Transmission Date: 20221027
  Serious: Yes (Other)
  Sender: FDA-Public Use
  Company Number: CN-BRISTOL-MYERS SQUIBB COMPANY-2022-085949

PATIENT
  Age: 41 Year
  Sex: Female

DRUGS (1)
  1. OPDIVO [Suspect]
     Active Substance: NIVOLUMAB
     Indication: Gastric cancer
     Dosage: Q3W
     Route: 041
     Dates: start: 20211220

REACTIONS (2)
  - Off label use [Unknown]
  - Gastrointestinal oedema [Unknown]

NARRATIVE: CASE EVENT DATE: 20220906
